FAERS Safety Report 6326891-5 (Version None)
Quarter: 2009Q3

REPORT INFORMATION
  Report Type: 
  Country: None (occurrence: None)
  Receive Date: 20090818
  Receipt Date: 20090615
  Transmission Date: 20100115
  Serious: No
  Sender: FDA-Public Use
  Company Number: WAES 0906USA02615

PATIENT
  Age: 53 Year
  Sex: Female

DRUGS (6)
  1. JANUVIA [Suspect]
     Indication: DIABETES MELLITUS
     Dosage: 100 MG/BID/PO
     Route: 048
     Dates: start: 20090608
  2. HYZAAR [Concomitant]
  3. ATENOLOL [Concomitant]
  4. GLIPIZIDE [Concomitant]
  5. LACTIC ACID [Concomitant]
  6. METFORMIN [Concomitant]

REACTIONS (5)
  - DEPRESSION [None]
  - INAPPROPRIATE SCHEDULE OF DRUG ADMINISTRATION [None]
  - MYALGIA [None]
  - OVERDOSE [None]
  - SOMNOLENCE [None]
